FAERS Safety Report 10411249 (Version 2)
Quarter: 2014Q3

REPORT INFORMATION
  Report Type: Spontaneous
  Country: US (occurrence: US)
  Receive Date: 20140826
  Receipt Date: 20140826
  Transmission Date: 20150326
  Serious: No
  Sender: FDA-Public Use
  Company Number: US-ASTRAZENECA-2013SE93070

PATIENT
  Sex: Male

DRUGS (2)
  1. SYMBICORT [Suspect]
     Active Substance: BUDESONIDE\FORMOTEROL FUMARATE DIHYDRATE
     Dosage: 160/4.5, TWO PUFFS TWO TIMES A DAY
     Route: 055
     Dates: start: 20131212
  2. SYMBICORT [Suspect]
     Active Substance: BUDESONIDE\FORMOTEROL FUMARATE DIHYDRATE
     Dosage: 160/4.5, TWO PUFFS TWO TIMES A DAY
     Route: 055
     Dates: start: 2010

REACTIONS (2)
  - Intentional product misuse [Unknown]
  - Burning sensation [Unknown]
